FAERS Safety Report 5319029-4 (Version None)
Quarter: 2007Q2

REPORT INFORMATION
  Report Type: 
  Country: None (occurrence: None)
  Receive Date: 20070503
  Receipt Date: 20070503
  Transmission Date: 20071010
  Serious: Yes (Hospitalization, Other)
  Sender: FDA-Public Use
  Company Number: None

PATIENT
  Sex: Male
  Weight: 85 kg

DRUGS (1)
  1. GADOLINIUM CONTRAST [Suspect]

REACTIONS (10)
  - BONE PAIN [None]
  - CELLULITIS [None]
  - CLOSTRIDIUM DIFFICILE COLITIS [None]
  - COLITIS ISCHAEMIC [None]
  - DIARRHOEA [None]
  - IMPAIRED HEALING [None]
  - MUSCULOSKELETAL PAIN [None]
  - NEPHROGENIC FIBROSING DERMOPATHY [None]
  - OEDEMA PERIPHERAL [None]
  - SKIN ULCER [None]
